FAERS Safety Report 11162468 (Version 1)
Quarter: 2015Q2

REPORT INFORMATION
  Report Type: Spontaneous
  Country: US (occurrence: US)
  Receive Date: 20150604
  Receipt Date: 20150604
  Transmission Date: 20150821
  Serious: No
  Sender: FDA-Public Use
  Company Number: US-SA-2014SA142193

PATIENT
  Age: 64 Year
  Sex: Female

DRUGS (2)
  1. SOLOSTAR [Suspect]
     Active Substance: DEVICE
     Indication: TYPE 2 DIABETES MELLITUS
  2. LANTUS SOLOSTAR [Suspect]
     Active Substance: INSULIN GLARGINE
     Indication: TYPE 2 DIABETES MELLITUS
     Dosage: DOSE:45 UNIT(S)
     Route: 065

REACTIONS (7)
  - Injection site pain [Unknown]
  - Throat irritation [Unknown]
  - Panic reaction [Unknown]
  - Blood glucose abnormal [Unknown]
  - Influenza [Unknown]
  - Sinus disorder [Unknown]
  - Headache [Unknown]
